FAERS Safety Report 9808066 (Version 1)
Quarter: 2014Q1

REPORT INFORMATION
  Report Type: Spontaneous
  Country: US (occurrence: US)
  Receive Date: 20140110
  Receipt Date: 20140110
  Transmission Date: 20141002
  Serious: Yes (Other)
  Sender: FDA-Public Use
  Company Number: US-GLAXOSMITHKLINE-A1056052A

PATIENT
  Age: 66 Year
  Sex: Female

DRUGS (1)
  1. AMERGE [Suspect]
     Indication: MIGRAINE
     Dosage: 2.5MG UNKNOWN
     Route: 065
     Dates: start: 20090213

REACTIONS (1)
  - Pneumonia [Not Recovered/Not Resolved]
